FAERS Safety Report 16480436 (Version 1)
Quarter: 2019Q2

REPORT INFORMATION
  Report Type: Spontaneous
  Country: US (occurrence: US)
  Receive Date: 20190626
  Receipt Date: 20190626
  Transmission Date: 20190711
  Serious: No
  Sender: FDA-Public Use
  Company Number: US-ACTELION-A-NJ2019-185646

PATIENT
  Sex: Female
  Weight: 64.85 kg

DRUGS (2)
  1. UPTRAVI [Suspect]
     Active Substance: SELEXIPAG
     Indication: PULMONARY ARTERIAL HYPERTENSION
     Dosage: 200 MCG, BID
     Route: 048
  2. OPSUMIT [Suspect]
     Active Substance: MACITENTAN
     Indication: PULMONARY ARTERIAL HYPERTENSION
     Dosage: 10 MG, QD
     Route: 048
     Dates: start: 20170818

REACTIONS (7)
  - Blood iron decreased [Unknown]
  - Pain in jaw [Unknown]
  - Dependence on oxygen therapy [Unknown]
  - Nasopharyngitis [Unknown]
  - Head discomfort [Unknown]
  - Headache [Unknown]
  - Musculoskeletal pain [Unknown]
